FAERS Safety Report 13803556 (Version 1)
Quarter: 2017Q3

REPORT INFORMATION
  Report Type: Spontaneous
  Country: US (occurrence: US)
  Receive Date: 20170728
  Receipt Date: 20170728
  Transmission Date: 20171127
  Serious: No
  Sender: FDA-Public Use
  Company Number: US-TEVA-697209USA

PATIENT
  Sex: Female

DRUGS (1)
  1. CARTIA XT [Suspect]
     Active Substance: DILTIAZEM HYDROCHLORIDE

REACTIONS (2)
  - Wrong technique in product usage process [Unknown]
  - Medication residue present [Unknown]
